FAERS Safety Report 4684743-0 (Version None)
Quarter: 2005Q2

REPORT INFORMATION
  Report Type: 
  Country: None (occurrence: None)
  Receive Date: 20050531
  Receipt Date: 20050201
  Transmission Date: 20051028
  Serious: Yes (Hospitalization)
  Sender: FDA-Public Use
  Company Number: USA050189332

PATIENT
  Sex: Male

DRUGS (2)
  1. ZYPREXA [Suspect]
     Indication: BIPOLAR I DISORDER
     Dosage: 20 MG/1 DAY
     Dates: start: 20040201, end: 20040801
  2. KLONOPIN [Concomitant]

REACTIONS (2)
  - DRUG INEFFECTIVE [None]
  - MANIA [None]
